FAERS Safety Report 8328106-5 (Version None)
Quarter: 2012Q2

REPORT INFORMATION
  Report Type: 
  Country: None (occurrence: None)
  Receive Date: 20120502
  Receipt Date: 20120421
  Transmission Date: 20120825
  Serious: Yes (Other)
  Sender: FDA-Public Use
  Company Number: PHHY2012EG023932

PATIENT
  Sex: Female
  Weight: 65 kg

DRUGS (3)
  1. ZOMETA [Suspect]
     Indication: MULTIPLE MYELOMA
     Dosage: 4 MG, QMO (X11 TIMES)
     Route: 042
     Dates: start: 20100101, end: 20120101
  2. THALIDOMIDE [Concomitant]
     Dosage: UNK UKN, UNK
  3. PREDNISONE [Concomitant]
     Dosage: UNK UKN, UNK

REACTIONS (3)
  - BONE LESION [None]
  - BONE DISORDER [None]
  - PAIN IN JAW [None]
